FAERS Safety Report 5814777-1 (Version None)
Quarter: 2008Q3

REPORT INFORMATION
  Report Type: 
  Country: None (occurrence: None)
  Receive Date: 20080718
  Receipt Date: 20080709
  Transmission Date: 20090109
  Serious: Yes (Death, Hospitalization)
  Sender: FDA-Public Use
  Company Number: DE-WYE-H05047008

PATIENT
  Age: 69 Year
  Sex: Male

DRUGS (8)
  1. AMIODARONE HCL [Suspect]
     Indication: TACHYARRHYTHMIA
     Dosage: 1.5 G WITHIN 36 HOURS
     Route: 042
  2. AMIODARONE HCL [Suspect]
     Indication: ATRIAL FIBRILLATION
  3. AMIODARONE HCL [Suspect]
     Dosage: TOTAL DOSE OF 7 G THAN MAINTENANCE DOSE OF 200 MG PER DAY
     Route: 048
  4. AMIODARONE HCL [Suspect]
  5. AMOXICILLIN + CLAVULANATE POTASSIUM [Concomitant]
     Indication: PNEUMONIA
     Dosage: DOSE AND FREQUENCY NOT SPECIFIED
     Route: 065
  6. ACETYLSALICYLIC ACID SRT [Concomitant]
     Dosage: 100 MG, FREQUENCY NOT SPECIFIED
     Route: 048
  7. METOPROLOL TARTRATE [Concomitant]
     Indication: TACHYCARDIA
     Dosage: DOSE AND FREQUENCY NOT SPECIFIED
     Route: 065
  8. METOPROLOL TARTRATE [Concomitant]
     Indication: ATRIAL FIBRILLATION
     Dosage: DOSE AND FREQUENCY NOT SPECIFIED
     Route: 065

REACTIONS (3)
  - ACUTE RESPIRATORY DISTRESS SYNDROME [None]
  - MULTI-ORGAN FAILURE [None]
  - PNEUMONITIS [None]
